FAERS Safety Report 5513875-X (Version None)
Quarter: 2007Q4

REPORT INFORMATION
  Report Type: 
  Country: None (occurrence: None)
  Receive Date: 20071113
  Receipt Date: 20071105
  Transmission Date: 20080405
  Serious: Yes (Hospitalization, Other)
  Sender: FDA-Public Use
  Company Number: PHBS2007SE18422

PATIENT
  Age: 30 Year
  Sex: Male

DRUGS (3)
  1. VOLTAREN [Suspect]
     Dosage: 500 MG, ONCE/SINGLE
     Route: 048
     Dates: start: 20070809, end: 20070809
  2. SOMADRIL [Suspect]
     Dosage: UNK, ONCE/SINGLE
     Route: 048
     Dates: start: 20070809, end: 20070809
  3. ALVEDON [Suspect]
     Dosage: 5000 MG, ONCE/SINGLE
     Route: 048
     Dates: start: 20070809, end: 20070809

REACTIONS (2)
  - INTENTIONAL OVERDOSE [None]
  - SUICIDE ATTEMPT [None]
